FAERS Safety Report 5020972-4 (Version None)
Quarter: 2006Q2

REPORT INFORMATION
  Report Type: 
  Country: None (occurrence: None)
  Receive Date: 20060608
  Receipt Date: 20060526
  Transmission Date: 20061013
  Serious: Yes (Other)
  Sender: FDA-Public Use
  Company Number: PHBS2006CL08077

PATIENT
  Age: 64 Year
  Sex: Male

DRUGS (3)
  1. TAREG [Suspect]
     Indication: HYPERTENSION
     Dosage: 80 MG/DAY
     Route: 048
     Dates: start: 20010101
  2. SODIUM CITRATE [Concomitant]
  3. POTASSIUM CITRATE [Concomitant]

REACTIONS (1)
  - NEPHROLITHIASIS [None]
